FAERS Safety Report 4651969-1 (Version None)
Quarter: 2005Q2

REPORT INFORMATION
  Report Type: 
  Country: None (occurrence: None)
  Receive Date: 20050502
  Receipt Date: 20050414
  Transmission Date: 20051028
  Serious: Yes (Hospitalization)
  Sender: FDA-Public Use
  Company Number: 199124

PATIENT
  Age: 53 Year
  Sex: Female
  Weight: 77.1115 kg

DRUGS (36)
  1. AVONEX [Suspect]
     Indication: MULTIPLE SCLEROSIS
     Dosage: SEE IMAGE
     Route: 030
     Dates: start: 19960101, end: 20030801
  2. AVONEX [Suspect]
     Indication: MULTIPLE SCLEROSIS
     Dosage: SEE IMAGE
     Route: 030
     Dates: start: 20030801, end: 20031101
  3. AVONEX [Suspect]
     Indication: MULTIPLE SCLEROSIS
     Dosage: SEE IMAGE
     Route: 030
     Dates: start: 20040101, end: 20040218
  4. LEVBID [Concomitant]
  5. VALIUM [Concomitant]
  6. ATENOLOL [Concomitant]
  7. ACCUPRIL [Concomitant]
  8. DITROPAN [Concomitant]
  9. AMBIEN [Concomitant]
  10. LIPITOR [Concomitant]
  11. ZANAFLEX [Concomitant]
  12. OLUX [Concomitant]
  13. DIAZEPAM [Concomitant]
  14. CENESTIN [Concomitant]
  15. LEVAQUIN [Concomitant]
  16. MACROBID [Concomitant]
  17. WELCHOL [Concomitant]
  18. LISINOPRIL [Concomitant]
  19. ZETIA [Concomitant]
  20. SOMA [Concomitant]
  21. DIFLUCAN [Concomitant]
  22. FLAGYL [Concomitant]
  23. QUESTRAN [Concomitant]
  24. LEXAPRO [Concomitant]
  25. CIPRO [Concomitant]
  26. AMOXIL [Concomitant]
  27. VICODIN [Concomitant]
  28. GLUCOPHAGE [Concomitant]
  29. ZOLOFT [Concomitant]
  30. AVANDIA [Concomitant]
  31. HYDROCODONE BITARTRATE [Concomitant]
  32. AVANDAMET [Concomitant]
  33. BACTROBAN [Concomitant]
  34. CLOTRIMAZOLE [Concomitant]
  35. GLADASEC-C OINTMENT [Concomitant]
  36. SILVER SULFA CREAM [Concomitant]

REACTIONS (14)
  - ALANINE AMINOTRANSFERASE INCREASED [None]
  - ASPARTATE AMINOTRANSFERASE INCREASED [None]
  - BLOOD GLUCOSE INCREASED [None]
  - CULTURE WOUND POSITIVE [None]
  - DECUBITUS ULCER [None]
  - ENTEROCOCCAL INFECTION [None]
  - EXCORIATION [None]
  - HYPERTENSION [None]
  - IMPAIRED HEALING [None]
  - INFECTION [None]
  - MORGANELLA INFECTION [None]
  - OSTEOMYELITIS [None]
  - PYREXIA [None]
  - STOMACH DISCOMFORT [None]
